FAERS Safety Report 16152015 (Version 1)
Quarter: 2019Q2

REPORT INFORMATION
  Report Type: Spontaneous
  Country: US (occurrence: US)
  Receive Date: 20190403
  Receipt Date: 20190403
  Transmission Date: 20190711
  Serious: No
  Sender: FDA-Public Use
  Company Number: US-SUNOVION-2019SUN001283

PATIENT
  Age: 80 Year

DRUGS (31)
  1. FLUAD PEDIATRIC [Concomitant]
     Dosage: 0.5 ML ONCE
     Route: 030
  2. OXYGEN. [Concomitant]
     Active Substance: OXYGEN
     Dosage: LPM CONTINOUS NASAL CANULA OR CPAP MASK
     Route: 065
  3. OXYBUTYNIN CHLORIDE. [Concomitant]
     Active Substance: OXYBUTYNIN CHLORIDE
     Dosage: 5 MG, BID
     Route: 048
  4. ALBUTEROL HFA [Concomitant]
     Active Substance: ALBUTEROL SULFATE
     Dosage: 108 (90 BASE) MCG/ACT, 2 PUFFS AS NEEDED
     Route: 055
  5. GUAIFENESIN. [Concomitant]
     Active Substance: GUAIFENESIN
     Dosage: 400 MG, BID AS DIRECTED
     Route: 048
  6. DIGOXIN TEVA [Concomitant]
     Dosage: 125 MCG QD
     Route: 048
  7. CLEARLAX [Concomitant]
     Active Substance: POLYETHYLENE GLYCOL 3350
     Dosage: UNK
     Route: 065
  8. LONHALA MAGNAIR [Suspect]
     Active Substance: GLYCOPYRROLATE
     Dosage: UNK
     Route: 055
  9. TOVIAZ [Concomitant]
     Active Substance: FESOTERODINE FUMARATE
     Dosage: 8 MG, QD
     Route: 048
  10. GABAPENTIN ACCORD [Concomitant]
     Dosage: 300 MG, QD
     Route: 048
  11. ALBUTEROL HFA [Concomitant]
     Active Substance: ALBUTEROL SULFATE
     Dosage: 2.5 MG/3 ML, TID
     Route: 055
  12. POTASSIUM CHLORIDE PROAMP [Concomitant]
     Dosage: 20 MEQ, QD
     Route: 048
  13. MULTIVITAMIN (16) [Concomitant]
     Active Substance: VITAMINS
     Dosage: UNK
     Route: 048
  14. ROSUVASTATIN AB [Concomitant]
     Dosage: 5 MG, QD
     Route: 048
  15. SALINE R [Concomitant]
     Dosage: 0.2 % SOLUTION, TID
     Route: 055
  16. SALINE R [Concomitant]
     Dosage: 0.9% SOLUTION, TID
     Route: 055
  17. POTASSIUM CHLORIDE PROAMP [Concomitant]
     Dosage: 1 TABLET PER MOUTH ONCE DAILY
     Route: 048
  18. XARELTO [Concomitant]
     Active Substance: RIVAROXABAN
     Dosage: 15 MG
     Route: 048
  19. VITAMIN B COMPLEX COX [Concomitant]
     Dosage: UNK
     Route: 048
  20. COENZYME Q10 [Concomitant]
     Active Substance: UBIDECARENONE
     Dosage: 200 MG, QD
     Route: 048
  21. DILTIAZEM ACTAVIS [Concomitant]
     Dosage: 300 MG, QD
     Route: 048
  22. OXYGEN. [Concomitant]
     Active Substance: OXYGEN
     Dosage: UNK
     Route: 065
  23. VITAMIN D3 [Concomitant]
     Active Substance: CHOLECALCIFEROL
     Dosage: 1000 UNIT QD
     Route: 048
  24. FUROSEMIDE. [Concomitant]
     Active Substance: FUROSEMIDE
     Dosage: 20 MG, QD
     Route: 048
  25. BREO ELLIPTA [Concomitant]
     Active Substance: FLUTICASONE FUROATE\VILANTEROL TRIFENATATE
     Dosage: 100-25 MCG/INH, QD
     Route: 055
  26. DILTIAZEM ACTAVIS [Concomitant]
     Dosage: 300 MG, QD
     Route: 048
  27. TRADJENTA [Concomitant]
     Active Substance: LINAGLIPTIN
     Dosage: 5 MG, QD
     Route: 048
  28. REPAGLINIDE ACCORD [Concomitant]
     Dosage: 1 MG, BID
     Route: 048
  29. VENTOLIN HFA [Concomitant]
     Active Substance: ALBUTEROL SULFATE
     Dosage: 108 (90 BASE) MCG/ACT TWO PUFFS AS NEEDED
     Route: 055
  30. DILTIAZEM ACTAVIS [Concomitant]
     Dosage: 300 MG, QD
     Route: 048
  31. OMEGA 3 [Concomitant]
     Active Substance: OMEGA-3 FATTY ACIDS
     Dosage: 1200 MG, QD
     Route: 048

REACTIONS (2)
  - Dyspnoea [Unknown]
  - Oxygen saturation decreased [Unknown]

NARRATIVE: CASE EVENT DATE: 20190326
